FAERS Safety Report 4333398-3 (Version None)
Quarter: 2004Q1

REPORT INFORMATION
  Report Type: 
  Country: None (occurrence: None)
  Receive Date: 20040330
  Receipt Date: 20040312
  Transmission Date: 20041129
  Serious: Yes (Death)
  Sender: FDA-Public Use
  Company Number: M04-INT-024

PATIENT
  Age: 65 Year
  Sex: Female
  Weight: 133 kg

DRUGS (7)
  1. INTEGRILIN [Suspect]
     Indication: CORONARY ANGIOPLASTY
     Dosage: 11.3CC(1703 MCG/KG); INTRAVENOUS BOLUS
     Route: 040
     Dates: start: 20040212
  2. HEPARIN [Suspect]
     Indication: ANGIOPLASTY
     Dosage: 500 TO 1000 UNITS/HOUR: INTRAVENOUS DRIP
     Route: 041
     Dates: start: 20041213, end: 20040213
  3. ASPIRIN [Concomitant]
  4. BIVALIRUDIN [Concomitant]
  5. CLOPIDOGREL [Concomitant]
  6. GLYCERYL TRINITRATE [Concomitant]
  7. LOVENOX [Concomitant]

REACTIONS (4)
  - CARDIAC PROCEDURE COMPLICATION [None]
  - HAEMATOCRIT DECREASED [None]
  - RENAL FAILURE ACUTE [None]
  - THROMBOCYTOPENIA [None]
